FAERS Safety Report 5497470-7 (Version None)
Quarter: 2007Q4

REPORT INFORMATION
  Report Type: 
  Country: None (occurrence: None)
  Receive Date: 20071025
  Receipt Date: 20061120
  Transmission Date: 20080405
  Serious: No
  Sender: FDA-Public Use
  Company Number: A0628115A

PATIENT
  Age: 81 Year
  Sex: Female

DRUGS (4)
  1. ADVAIR DISKUS 100/50 [Suspect]
     Indication: ASTHMA
     Dosage: 1PUFF TWICE PER DAY
     Route: 055
  2. FUROSEMIDE [Concomitant]
  3. ALTACE [Concomitant]
  4. ZYRTEC [Concomitant]

REACTIONS (3)
  - APHONIA [None]
  - LARYNGITIS [None]
  - PHARMACEUTICAL PRODUCT COMPLAINT [None]
